FAERS Safety Report 6673137-4 (Version None)
Quarter: 2010Q2

REPORT INFORMATION
  Report Type: 
  Country: None (occurrence: None)
  Receive Date: 20100408
  Receipt Date: 20100329
  Transmission Date: 20101027
  Serious: Yes (Hospitalization)
  Sender: FDA-Public Use
  Company Number: GXKR2010CY03653

PATIENT
  Age: 28 Year
  Sex: Male

DRUGS (2)
  1. ACETYLSALICYLIC ACID SRT [Suspect]
     Dosage: 50 G
     Route: 048
  2. PAROXETINE HCL [Concomitant]
     Indication: DEPRESSION
     Dosage: SINCE LAST YEAR
     Route: 065

REACTIONS (8)
  - ABDOMINAL DISCOMFORT [None]
  - FANCONI SYNDROME ACQUIRED [None]
  - HYPERVENTILATION [None]
  - INTENTIONAL OVERDOSE [None]
  - METABOLIC ACIDOSIS [None]
  - RENAL FAILURE ACUTE [None]
  - RENAL TUBULAR DISORDER [None]
  - RESPIRATORY ALKALOSIS [None]
